FAERS Safety Report 9625135 (Version 1)
Quarter: 2013Q4

REPORT INFORMATION
  Report Type: Spontaneous
  Country: IT (occurrence: IT)
  Receive Date: 20131016
  Receipt Date: 20131016
  Transmission Date: 20140711
  Serious: Yes (Other)
  Sender: FDA-Public Use
  Company Number: IT-JNJFOC-20131004884

PATIENT
  Sex: 0

DRUGS (9)
  1. INFLIXIMAB, RECOMBINANT [Suspect]
     Indication: PSORIATIC ARTHROPATHY
     Route: 042
  2. ADALIMUMAB [Suspect]
     Indication: PSORIATIC ARTHROPATHY
     Route: 065
  3. ETANERCEPT [Suspect]
     Indication: PSORIATIC ARTHROPATHY
     Route: 065
  4. METHOTREXATE [Concomitant]
     Route: 065
  5. SULPHASALAZINE [Concomitant]
     Route: 065
  6. CYCLOSPORINE [Concomitant]
     Route: 065
  7. LEFLUNOMIDE [Concomitant]
     Route: 065
  8. CORTICOSTEROIDS [Concomitant]
     Route: 065
  9. NSAIDS [Concomitant]
     Route: 065

REACTIONS (1)
  - Adverse event [Unknown]
